FAERS Safety Report 7938652-1 (Version None)
Quarter: 2011Q4

REPORT INFORMATION
  Report Type: 
  Country: None (occurrence: None)
  Receive Date: 20111123
  Receipt Date: 20111116
  Transmission Date: 20120403
  Serious: Yes (Other)
  Sender: FDA-Public Use
  Company Number: FR-MERCK-1111USA02785

PATIENT
  Age: 87 Year
  Sex: Female

DRUGS (1)
  1. NOROXIN [Suspect]
     Route: 048

REACTIONS (1)
  - TOXIC SKIN ERUPTION [None]
